FAERS Safety Report 5050116-4 (Version None)
Quarter: 2006Q3

REPORT INFORMATION
  Report Type: 
  Country: None (occurrence: None)
  Receive Date: 20060713
  Receipt Date: 20060707
  Transmission Date: 20061208
  Serious: Yes (Other)
  Sender: FDA-Public Use
  Company Number: PHEH2006US08729

PATIENT
  Age: 68 Year
  Sex: Female

DRUGS (4)
  1. MIACALCIN [Suspect]
     Indication: OSTEOPOROSIS
     Dosage: 200 IU, QD
     Dates: start: 19970101, end: 19990101
  2. MIACALCIN [Suspect]
     Dosage: 200 IU, QD
     Dates: start: 20010101
  3. ELMIRON [Concomitant]
  4. ESTROGENS [Concomitant]

REACTIONS (4)
  - EYE DISORDER [None]
  - HAIR METAL TEST ABNORMAL [None]
  - OPHTHALMOLOGICAL EXAMINATION ABNORMAL [None]
  - OPTIC NERVE DISORDER [None]
